FAERS Safety Report 6912577-2 (Version None)
Quarter: 2010Q3

REPORT INFORMATION
  Report Type: 
  Country: None (occurrence: None)
  Receive Date: 20100806
  Receipt Date: 20080730
  Transmission Date: 20110219
  Serious: No
  Sender: FDA-Public Use
  Company Number: US-PFIZER INC-2008054157

PATIENT
  Age: 53 Year
  Sex: Male
  Weight: 88.9 kg

DRUGS (8)
  1. DILANTIN [Suspect]
     Indication: HEAD INJURY
     Route: 048
  2. DILANTIN [Suspect]
     Indication: CONVULSION
  3. VANCOMYCIN [Concomitant]
  4. MICARDIS [Concomitant]
  5. INVANZ [Concomitant]
  6. DIAMOX SRC [Concomitant]
  7. ROCALTROL [Concomitant]
  8. DIGOXIN [Concomitant]

REACTIONS (2)
  - ANTICONVULSANT DRUG LEVEL DECREASED [None]
  - DRUG INEFFECTIVE [None]
